FAERS Safety Report 17700025 (Version 2)
Quarter: 2020Q2

REPORT INFORMATION
  Report Type: Spontaneous
  Country: US (occurrence: US)
  Receive Date: 20200423
  Receipt Date: 20200507
  Transmission Date: 20200714
  Serious: No
  Sender: FDA-Public Use
  Company Number: US-PHARMING-PHAUS2020000168

PATIENT

DRUGS (1)
  1. RUCONEST [Suspect]
     Active Substance: HUMAN C1-ESTERASE INHIBITOR
     Indication: HEREDITARY ANGIOEDEMA
     Dosage: 2100 TO 4200 INTERNATIONAL UNITS, TWICE WEEKLY AND AS NEEDED
     Route: 042
     Dates: start: 2018

REACTIONS (2)
  - Product quality issue [Unknown]
  - Intentional product use issue [Unknown]
